FAERS Safety Report 9964332 (Version 1)
Quarter: 2014Q1

REPORT INFORMATION
  Report Type: Spontaneous
  Country: CA (occurrence: CA)
  Receive Date: 20140305
  Receipt Date: 20140305
  Transmission Date: 20141002
  Serious: Yes (Hospitalization, Other)
  Sender: FDA-Public Use
  Company Number: CHPA2014CA003431

PATIENT
  Age: 76 Year
  Sex: Female

DRUGS (5)
  1. BUCKLEY^S MIXTURE [Suspect]
     Indication: NASOPHARYNGITIS
     Dosage: 2 TSP, EVERY 3,4,5 HOURS AS NEEDED
     Route: 048
     Dates: end: 201402
  2. BUCKLEY^S MIXTURE [Suspect]
     Indication: COUGH
  3. ACETYLSALICYLIC ACID [Suspect]
     Indication: CHEST PAIN
     Dosage: A LOW DOSE
     Dates: start: 2013
  4. ACETYLSALICYLIC ACID [Suspect]
     Indication: OFF LABEL USE
  5. DIAZEPAM [Concomitant]
     Dosage: 5 MG, UNK
     Dates: start: 1994

REACTIONS (5)
  - Pneumonia [Not Recovered/Not Resolved]
  - Dyspnoea [Not Recovered/Not Resolved]
  - Chest pain [Recovering/Resolving]
  - Cough [Not Recovered/Not Resolved]
  - Therapeutic response unexpected [Unknown]
